FAERS Safety Report 4773881-X (Version None)
Quarter: 2005Q3

REPORT INFORMATION
  Report Type: 
  Country: None (occurrence: None)
  Receive Date: 20050919
  Receipt Date: 20050901
  Transmission Date: 20060218
  Serious: Yes (Other)
  Sender: FDA-Public Use
  Company Number: 12253

PATIENT
  Age: 72 Year
  Sex: Female

DRUGS (1)
  1. METHOTREXATE [Suspect]
     Indication: RHEUMATOID ARTHRITIS

REACTIONS (9)
  - BONE DISORDER [None]
  - EPSTEIN-BARR VIRUS INFECTION [None]
  - IMPAIRED HEALING [None]
  - JAW DISORDER [None]
  - LYMPHOMA [None]
  - LYMPHOPROLIFERATIVE DISORDER [None]
  - OSTEONECROSIS [None]
  - TOOTH DISORDER [None]
  - ULCER [None]
